FAERS Safety Report 4940786-0 (Version None)
Quarter: 2006Q1

REPORT INFORMATION
  Report Type: 
  Country: None (occurrence: None)
  Receive Date: 20060307
  Receipt Date: 20060221
  Transmission Date: 20060701
  Serious: Yes (Hospitalization)
  Sender: FDA-Public Use
  Company Number: SUS1-2006-00228

PATIENT
  Age: 29 Year
  Sex: Male

DRUGS (1)
  1. MESALAZINE CONTROLLED RELEASE (MESALAZINE) CAPSULE CR [Suspect]
     Dosage: 3 G DAILY, ORAL
     Route: 048
     Dates: start: 20021016

REACTIONS (14)
  - ABDOMINAL PAIN [None]
  - BRONCHOALVEOLAR LAVAGE ABNORMAL [None]
  - CROHN'S DISEASE [None]
  - CRYPTOGENIC ORGANIZING PNEUMONIA [None]
  - DIARRHOEA HAEMORRHAGIC [None]
  - DISEASE RECURRENCE [None]
  - EOSINOPHILIA [None]
  - INFLAMMATION [None]
  - LUNG CONSOLIDATION [None]
  - PLEURAL DISORDER [None]
  - PLEURAL EFFUSION [None]
  - PLEURAL FIBROSIS [None]
  - PLEURITIC PAIN [None]
  - RESPIRATORY RATE INCREASED [None]
